FAERS Safety Report 5739737-0 (Version None)
Quarter: 2008Q2

REPORT INFORMATION
  Report Type: 
  Country: None (occurrence: None)
  Receive Date: 20080512
  Receipt Date: 20080512
  Transmission Date: 20081010
  Serious: Yes (Other)
  Sender: FDA-Public Use
  Company Number: None

PATIENT
  Age: 43 Year
  Sex: Female
  Weight: 55.3388 kg

DRUGS (1)
  1. ABILIFY [Suspect]
     Dosage: 2.5 EVERY FEW DAYSA

REACTIONS (12)
  - ANXIETY [None]
  - ARTHRALGIA [None]
  - BLOOD DISORDER [None]
  - CONSTIPATION [None]
  - DEPRESSION [None]
  - FLUID RETENTION [None]
  - HYPERHIDROSIS [None]
  - IMPULSIVE BEHAVIOUR [None]
  - INSOMNIA [None]
  - NAUSEA [None]
  - TREMOR [None]
  - WEIGHT INCREASED [None]
